FAERS Safety Report 6232370-6 (Version None)
Quarter: 2009Q2

REPORT INFORMATION
  Report Type: 
  Country: None (occurrence: None)
  Receive Date: 20090617
  Receipt Date: 20090605
  Transmission Date: 20091009
  Serious: Yes (Other)
  Sender: FDA-Public Use
  Company Number: PHHY2009JP22444

PATIENT
  Sex: Male

DRUGS (10)
  1. ZOLEDRONIC ACID [Suspect]
     Indication: MULTIPLE MYELOMA
     Dosage: 4 MG (SINGLE DOSE)
     Route: 042
     Dates: start: 20071102, end: 20071102
  2. THALIDOMIDE [Suspect]
     Dosage: UNK
     Dates: start: 20070601
  3. DECADRON [Suspect]
     Dosage: UNK
     Dates: start: 20070601
  4. MAGLAX [Concomitant]
     Dosage: 1650 MG, UNK
     Route: 048
     Dates: start: 20071102
  5. PURSENNID [Concomitant]
     Dosage: 12 MG, UNK
     Route: 048
     Dates: start: 20071102
  6. SELBEX [Concomitant]
     Dosage: 150 MG, UNK
     Route: 048
     Dates: start: 20071102
  7. GASTER D [Concomitant]
     Dosage: 20 MG, UNK
     Route: 048
     Dates: start: 20071102
  8. CONIEL [Concomitant]
     Dosage: 2 MG, UNK
     Route: 048
     Dates: start: 20071102
  9. ZEFFIX [Concomitant]
     Dosage: 100 MG, UNK
     Route: 048
     Dates: start: 20071102
  10. BAKTAR [Concomitant]
     Dosage: 1 DF, UNK
     Route: 048
     Dates: start: 20071102

REACTIONS (3)
  - BLOOD CREATININE INCREASED [None]
  - DIABETES MELLITUS INADEQUATE CONTROL [None]
  - PULMONARY EMBOLISM [None]
